FAERS Safety Report 7623692-2 (Version None)
Quarter: 2011Q3

REPORT INFORMATION
  Report Type: 
  Country: None (occurrence: None)
  Receive Date: 20110720
  Receipt Date: 20110627
  Transmission Date: 20111222
  Serious: Yes (Hospitalization)
  Sender: FDA-Public Use
  Company Number: US-GLAXOSMITHKLINE-A0870474A

PATIENT
  Age: 29 Year
  Sex: Female
  Weight: 115 kg

DRUGS (2)
  1. AVANDIA [Suspect]
     Indication: DIABETES MELLITUS
     Route: 048
     Dates: start: 20010101, end: 20070301
  2. AVANDAMET [Suspect]
     Indication: DIABETES MELLITUS

REACTIONS (1)
  - MYOCARDIAL INFARCTION [None]
